FAERS Safety Report 12833317 (Version 1)
Quarter: 2016Q4

REPORT INFORMATION
  Report Type: Spontaneous
  Country: US (occurrence: US)
  Receive Date: 20161010
  Receipt Date: 20161010
  Transmission Date: 20170207
  Serious: Yes (Death)
  Sender: FDA-Public Use
  Company Number: US-ACTELION-A-US2016-143066

PATIENT
  Age: 50 Year
  Sex: Female

DRUGS (14)
  1. DRISDOL [Concomitant]
     Active Substance: ERGOCALCIFEROL
  2. FENTANYL - B.BRAUN [Concomitant]
  3. XARELTO [Concomitant]
     Active Substance: RIVAROXABAN
  4. PREDNISONE. [Concomitant]
     Active Substance: PREDNISONE
  5. POTASSIUM [Concomitant]
     Active Substance: POTASSIUM
  6. ADEMPAS [Concomitant]
     Active Substance: RIOCIGUAT
  7. TYVASO [Concomitant]
     Active Substance: TREPROSTINIL
  8. COUMADIN [Concomitant]
     Active Substance: WARFARIN SODIUM
  9. TRIAMCINOLONE [Concomitant]
     Active Substance: TRIAMCINOLONE
  10. ADVAIR HFA [Concomitant]
     Active Substance: FLUTICASONE PROPIONATE\SALMETEROL XINAFOATE
  11. FUROSEMIDE. [Concomitant]
     Active Substance: FUROSEMIDE
  12. AMLODIPINE [Concomitant]
     Active Substance: AMLODIPINE BESYLATE
  13. OPSUMIT [Suspect]
     Active Substance: MACITENTAN
     Indication: PULMONARY ARTERIAL HYPERTENSION
     Dosage: 10 MG, QD
     Route: 048
     Dates: start: 20150915
  14. PRISTIQ EXTENDED-RELEASE [Concomitant]
     Active Substance: DESVENLAFAXINE SUCCINATE

REACTIONS (1)
  - Cardiac arrest [Fatal]
